FAERS Safety Report 8222371 (Version 4)
Quarter: 2013Q3

REPORT INFORMATION
  Report Type: Report from Study
  Country: JP (occurrence: JP)
  Receive Date: 20111102
  Receipt Date: 20130924
  Transmission Date: 20140515
  Serious: Yes (Hospitalization, Other)
  Sender: FDA-Public Use
  Company Number: JP-GILEAD-E2B_00001415

PATIENT
  Age: 77 Year
  Sex: Female

DRUGS (11)
  1. AMBRISENTAN [Suspect]
     Indication: PULMONARY HYPERTENSION
     Dosage: 2.5 MG, QD
     Route: 048
     Dates: start: 20110525, end: 20110612
  2. WARFARIN [Concomitant]
     Dosage: 2.5MG PER DAY
     Route: 048
  3. LIPITOR [Concomitant]
     Dosage: 5MG PER DAY
     Route: 048
  4. HERBESSER [Concomitant]
     Indication: BLOOD PRESSURE DECREASED
     Dosage: 30MG TWICE PER DAY
     Route: 048
     Dates: end: 20110610
  5. PLAVIX                             /01220702/ [Concomitant]
     Dosage: 25 MG, BID
     Route: 048
  6. FRANDOL [Concomitant]
     Dosage: 1 IUAX, QD
     Route: 062
  7. LENDORMIN [Concomitant]
     Dosage: 0.25 MG, QD
     Route: 048
  8. TAKEPRON [Concomitant]
     Dosage: 15MG PER DAY
     Route: 048
  9. DIOVAN [Concomitant]
     Dosage: 40 MG, QD
     Route: 048
  10. BERAPROST SODIUM [Concomitant]
     Dosage: 20 MCG, QD
     Route: 048
  11. FUROSEMIDE [Concomitant]
     Route: 048

REACTIONS (4)
  - Aphagia [Recovered/Resolved]
  - Decreased appetite [Recovered/Resolved]
  - Nausea [Recovered/Resolved]
  - Dehydration [Recovered/Resolved]
